FAERS Safety Report 13101374 (Version 1)
Quarter: 2017Q1

REPORT INFORMATION
  Report Type: Report from Study
  Country: CN (occurrence: CN)
  Receive Date: 20170110
  Receipt Date: 20170110
  Transmission Date: 20170428
  Serious: Yes (Other)
  Sender: FDA-Public Use
  Company Number: CN-GLAXOSMITHKLINE-CN2017GSK002100

PATIENT
  Age: 31 Year
  Sex: Female

DRUGS (3)
  1. SEBIVO [Suspect]
     Active Substance: TELBIVUDINE
     Indication: HEPATITIS B
     Dosage: UNK, U
     Route: 048
  2. LAMIVUDINE. [Suspect]
     Active Substance: LAMIVUDINE
     Indication: HEPATITIS B
     Dosage: UNK, U
     Route: 048
  3. FOLATE [Concomitant]
     Active Substance: FOLATE SODIUM

REACTIONS (3)
  - Gestational diabetes [Recovered/Resolved]
  - Live birth [Unknown]
  - Exposure during pregnancy [Unknown]

NARRATIVE: CASE EVENT DATE: 20140216
